FAERS Safety Report 5496684-X (Version None)
Quarter: 2007Q4

REPORT INFORMATION
  Report Type: 
  Country: None (occurrence: None)
  Receive Date: 20071025
  Receipt Date: 20070702
  Transmission Date: 20080405
  Serious: No
  Sender: FDA-Public Use
  Company Number: A0661321A

PATIENT
  Age: 69 Year
  Sex: Female

DRUGS (11)
  1. ADVAIR DISKUS 100/50 [Suspect]
     Indication: ASTHMA
     Dosage: 1MCG TWICE PER DAY
     Route: 055
     Dates: start: 20070411
  2. EVISTA [Concomitant]
  3. ESTRADIOL [Concomitant]
  4. PROPRANOLOL [Concomitant]
  5. CELEBREX [Concomitant]
  6. TRIAMTERENE AND HYDROCHLOROTHIAZIDE [Concomitant]
  7. VERAPAMIL [Concomitant]
  8. CALCIUM [Concomitant]
  9. ASPIRIN [Concomitant]
  10. VITAMIN B [Concomitant]
  11. MULTI-VITAMIN [Concomitant]

REACTIONS (1)
  - TOOTH DISCOLOURATION [None]
